FAERS Safety Report 16403106 (Version 2)
Quarter: 2019Q3

REPORT INFORMATION
  Report Type: Report from Study
  Country: CA (occurrence: CA)
  Receive Date: 20190607
  Receipt Date: 20190801
  Transmission Date: 20191004
  Serious: Yes (Hospitalization)
  Sender: FDA-Public Use
  Company Number: CA-B.I. PHARMACEUTICALS,INC./RIDGEFIELD-2019-BI-000451

PATIENT
  Age: 75 Year
  Sex: Female

DRUGS (1)
  1. OFEV [Suspect]
     Active Substance: NINTEDANIB
     Indication: IDIOPATHIC PULMONARY FIBROSIS
     Route: 048
     Dates: start: 20181212

REACTIONS (5)
  - Diarrhoea [Recovered/Resolved]
  - Vomiting [Recovered/Resolved]
  - Diarrhoea [Not Recovered/Not Resolved]
  - Diarrhoea [Recovered/Resolved]
  - Dehydration [Not Recovered/Not Resolved]

NARRATIVE: CASE EVENT DATE: 20181212
